FAERS Safety Report 7967965-2 (Version None)
Quarter: 2011Q4

REPORT INFORMATION
  Report Type: 
  Country: None (occurrence: None)
  Receive Date: 20111207
  Receipt Date: 20111207
  Transmission Date: 20120403
  Serious: No
  Sender: FDA-Public Use
  Company Number: None

PATIENT
  Age: 74 Year
  Sex: Female
  Weight: 53.5244 kg

DRUGS (1)
  1. LIDODERM [Suspect]
     Indication: MUSCLE STRAIN
     Dosage: 2 PATCHES  ON 12 HRS.   OFF 12 HRS
     Route: 062
     Dates: start: 20111006, end: 20111011

REACTIONS (1)
  - DRUG INEFFECTIVE [None]
